FAERS Safety Report 5342307-X (Version None)
Quarter: 2007Q2

REPORT INFORMATION
  Report Type: 
  Country: None (occurrence: None)
  Receive Date: 20070601
  Receipt Date: 20070522
  Transmission Date: 20071010
  Serious: Yes (Hospitalization)
  Sender: FDA-Public Use
  Company Number: US-SANOFI-SYNTHELABO-F03200700103

PATIENT
  Age: 62 Year
  Sex: Female
  Weight: 108.5 kg

DRUGS (14)
  1. NOVOLIN 70/30 [Concomitant]
     Dosage: UNK
     Route: 058
  2. IBUPROFEN [Suspect]
     Dosage: UNK
     Route: 048
  3. HYDROCHLOROTHIAZIDE [Suspect]
     Dosage: UNK
     Route: 048
  4. AMITRIPTYLINE HCL [Concomitant]
     Dosage: UNK
     Route: 048
  5. QUINAPRIL [Concomitant]
     Route: 048
  6. METFORMIN HCL [Concomitant]
     Dosage: UNK
     Route: 048
  7. ATORVASTATIN [Concomitant]
     Route: 048
  8. CLONIDINE [Concomitant]
     Dosage: UNK
     Route: 048
  9. ATENOLOL [Concomitant]
     Route: 048
  10. LANSOPRAZOLE [Concomitant]
     Route: 048
  11. SULFASALAZINE [Suspect]
     Dosage: UNK
     Route: 048
  12. METHOTREXATE SODIUM [Suspect]
     Dosage: UNK
     Route: 048
  13. PLAQUENIL [Suspect]
     Dosage: UNK
     Route: 048
  14. ETANERCEPT [Suspect]
     Dosage: UNK
     Route: 065
     Dates: start: 20061122

REACTIONS (2)
  - RASH PUSTULAR [None]
  - RENAL FAILURE ACUTE [None]
